FAERS Safety Report 13303909 (Version 1)
Quarter: 2017Q1

REPORT INFORMATION
  Report Type: Spontaneous
  Country: DK (occurrence: DK)
  Receive Date: 20170307
  Receipt Date: 20170307
  Transmission Date: 20170428
  Serious: Yes (Hospitalization)
  Sender: FDA-Public Use
  Company Number: PHHY2017DK030971

PATIENT
  Age: 13 Year
  Sex: Female

DRUGS (1)
  1. QUETIAPINE. [Suspect]
     Active Substance: QUETIAPINE
     Indication: PSYCHOTIC DISORDER
     Dosage: 225 MG, QD
     Route: 065

REACTIONS (5)
  - Off label use [Unknown]
  - Dizziness [Unknown]
  - Cerebral haemorrhage [Not Recovered/Not Resolved]
  - Headache [Unknown]
  - Tachycardia [Unknown]
